FAERS Safety Report 18222036 (Version 2)
Quarter: 2020Q4

REPORT INFORMATION
  Report Type: Report from Study
  Country: JP (occurrence: JP)
  Receive Date: 20200902
  Receipt Date: 20201013
  Transmission Date: 20210113
  Serious: Yes (Hospitalization)
  Sender: FDA-Public Use
  Company Number: PHJP2019JP012674

PATIENT
  Age: 11 Year
  Sex: Male
  Weight: 34.8 kg

DRUGS (39)
  1. ILARIS [Suspect]
     Active Substance: CANAKINUMAB
     Dosage: 140 MG, UNK
     Route: 058
     Dates: start: 20180904
  2. ILARIS [Suspect]
     Active Substance: CANAKINUMAB
     Dosage: 141 MG, UNK
     Route: 058
     Dates: start: 20190318
  3. ILARIS [Suspect]
     Active Substance: CANAKINUMAB
     Dosage: 150 MG, UNK
     Route: 058
     Dates: start: 20200721
  4. PREDNISOLONE. [Suspect]
     Active Substance: PREDNISOLONE
     Dosage: 4.5 MG, UNK
     Route: 048
     Dates: start: 20181128, end: 20190122
  5. PREDNISOLONE. [Suspect]
     Active Substance: PREDNISOLONE
     Dosage: 4 MG, UNK
     Route: 048
     Dates: start: 20190123, end: 20190417
  6. PREDNISOLONE. [Suspect]
     Active Substance: PREDNISOLONE
     Dosage: 3.5 MG, UNK
     Route: 048
     Dates: start: 20190619, end: 20190806
  7. ILARIS [Suspect]
     Active Substance: CANAKINUMAB
     Dosage: 150 MG, UNK
     Route: 058
     Dates: start: 20200225
  8. ILARIS [Suspect]
     Active Substance: CANAKINUMAB
     Dosage: 138 MG, UNK
     Route: 058
     Dates: start: 20181127
  9. ILARIS [Suspect]
     Active Substance: CANAKINUMAB
     Dosage: 144 MG, UNK
     Route: 058
     Dates: start: 20190219
  10. ILARIS [Suspect]
     Active Substance: CANAKINUMAB
     Dosage: 141 MG, UNK
     Route: 058
     Dates: start: 20190417
  11. ILARIS [Suspect]
     Active Substance: CANAKINUMAB
     Dosage: 150 MG, UNK
     Route: 058
     Dates: start: 20191224
  12. ILARIS [Suspect]
     Active Substance: CANAKINUMAB
     Dosage: 150 MG, UNK
     Route: 058
     Dates: start: 20200326
  13. PREDNISOLONE. [Suspect]
     Active Substance: PREDNISOLONE
     Dosage: 5 MG, UNK
     Route: 048
     Dates: start: 20190612, end: 20190618
  14. ILARIS [Suspect]
     Active Substance: CANAKINUMAB
     Indication: STILL^S DISEASE
     Dosage: 140 MG, UNK
     Route: 058
     Dates: start: 20180710
  15. ILARIS [Suspect]
     Active Substance: CANAKINUMAB
     Dosage: 141 MG, UNK
     Route: 058
     Dates: start: 20190709
  16. ILARIS [Suspect]
     Active Substance: CANAKINUMAB
     Dosage: 150 MG, UNK
     Route: 058
     Dates: start: 20200623
  17. PREDNISOLONE. [Suspect]
     Active Substance: PREDNISOLONE
     Dosage: 5.5 MG, UNK
     Route: 048
     Dates: start: 20180807, end: 20181002
  18. ILARIS [Suspect]
     Active Substance: CANAKINUMAB
     Dosage: 142 MG, UNK
     Route: 058
     Dates: start: 20181225
  19. ILARIS [Suspect]
     Active Substance: CANAKINUMAB
     Dosage: 144 MG, UNK
     Route: 058
     Dates: start: 20190122
  20. ILARIS [Suspect]
     Active Substance: CANAKINUMAB
     Dosage: 141 MG, UNK
     Route: 058
     Dates: start: 20190515
  21. ILARIS [Suspect]
     Active Substance: CANAKINUMAB
     Dosage: 141 MG, UNK
     Route: 058
     Dates: start: 20190611
  22. ILARIS [Suspect]
     Active Substance: CANAKINUMAB
     Dosage: 132 MG, UNK
     Route: 058
     Dates: start: 20190903
  23. ILARIS [Suspect]
     Active Substance: CANAKINUMAB
     Dosage: 132 MG, UNK
     Route: 058
     Dates: start: 20191001
  24. ILARIS [Suspect]
     Active Substance: CANAKINUMAB
     Dosage: 150 MG, UNK
     Route: 058
     Dates: start: 20200526
  25. PREDNISOLONE. [Suspect]
     Active Substance: PREDNISOLONE
     Dosage: 5 MG, UNK
     Route: 048
     Dates: start: 20181003, end: 20181127
  26. ILARIS [Suspect]
     Active Substance: CANAKINUMAB
     Dosage: 140 MG, UNK
     Route: 058
     Dates: start: 20180807
  27. ILARIS [Suspect]
     Active Substance: CANAKINUMAB
     Dosage: 132 MG, UNK
     Route: 058
     Dates: start: 20190806
  28. ILARIS [Suspect]
     Active Substance: CANAKINUMAB
     Dosage: 150 MG, UNK
     Route: 058
     Dates: start: 20191126
  29. ILARIS [Suspect]
     Active Substance: CANAKINUMAB
     Dosage: 150 MG, UNK
     Route: 058
     Dates: start: 20200428
  30. PREDNISOLONE. [Suspect]
     Active Substance: PREDNISOLONE
     Dosage: 2 MG, UNK
     Route: 048
     Dates: start: 20191127
  31. TACROLIMUS. [Concomitant]
     Active Substance: TACROLIMUS
     Indication: STILL^S DISEASE
     Dosage: 4 MG, UNK
     Route: 048
     Dates: start: 20150108
  32. ILARIS [Suspect]
     Active Substance: CANAKINUMAB
     Dosage: 150 MG, UNK
     Route: 058
     Dates: start: 20191029
  33. PREDNISOLONE. [Suspect]
     Active Substance: PREDNISOLONE
     Dosage: 3 MG, UNK
     Route: 048
     Dates: start: 20190807, end: 20191126
  34. ILARIS [Suspect]
     Active Substance: CANAKINUMAB
     Dosage: 142.5 MG, UNK
     Route: 058
     Dates: start: 20181002
  35. ILARIS [Suspect]
     Active Substance: CANAKINUMAB
     Dosage: 144 MG, UNK
     Route: 058
     Dates: start: 20181029
  36. ILARIS [Suspect]
     Active Substance: CANAKINUMAB
     Dosage: 150 MG, UNK
     Route: 058
     Dates: start: 20200121
  37. PREDNISOLONE. [Suspect]
     Active Substance: PREDNISOLONE
     Indication: STILL^S DISEASE
     Dosage: 6 MG, UNK
     Route: 048
     Dates: start: 20171213, end: 20180806
  38. PREDNISOLONE. [Suspect]
     Active Substance: PREDNISOLONE
     Dosage: 3.5 MG, UNK
     Route: 048
     Dates: start: 20190418, end: 20190611
  39. METHOTREXATE. [Concomitant]
     Active Substance: METHOTREXATE
     Indication: STILL^S DISEASE
     Dosage: 10 MG, UNK
     Route: 048
     Dates: start: 20170420, end: 20190219

REACTIONS (4)
  - Scarlet fever [Recovered/Resolved]
  - Arthralgia [Recovered/Resolved]
  - Arthralgia [Recovered/Resolved]
  - Dermatitis atopic [Recovering/Resolving]

NARRATIVE: CASE EVENT DATE: 20181115
